FAERS Safety Report 20028851 (Version 2)
Quarter: 2021Q4

REPORT INFORMATION
  Report Type: Report from Study
  Country: CA (occurrence: CA)
  Receive Date: 20211103
  Receipt Date: 20211108
  Transmission Date: 20220304
  Serious: Yes (Death, Hospitalization, Other)
  Sender: FDA-Public Use
  Company Number: CA-NOVARTISPH-NVSC2021CA249984

PATIENT
  Age: 68 Year
  Sex: Female
  Weight: 49.4 kg

DRUGS (2)
  1. TRAMETINIB [Suspect]
     Active Substance: TRAMETINIB
     Indication: Metastatic malignant melanoma
     Dosage: 2 MG
     Route: 048
     Dates: start: 20210713, end: 20210729
  2. TRAMETINIB [Suspect]
     Active Substance: TRAMETINIB
     Indication: Ovarian cancer recurrent

REACTIONS (8)
  - Fatigue [Fatal]
  - Asthenia [Fatal]
  - Pneumonia [Not Recovered/Not Resolved]
  - Blood pressure systolic abnormal [Recovered/Resolved]
  - Ovarian cancer [Unknown]
  - Malignant neoplasm progression [Unknown]
  - Hepatic enzyme increased [Recovered/Resolved]
  - Drug ineffective [Unknown]

NARRATIVE: CASE EVENT DATE: 20210723
